FAERS Safety Report 6874830-0 (Version None)
Quarter: 2010Q2

REPORT INFORMATION
  Report Type: 
  Country: None (occurrence: None)
  Receive Date: 20100610
  Receipt Date: 20100222
  Transmission Date: 20101027
  Serious: No
  Sender: FDA-Public Use
  Company Number: 2010SP011307

PATIENT
  Sex: Male

DRUGS (1)
  1. SAPHRIS [Suspect]
     Indication: DRUG USE FOR UNKNOWN INDICATION
     Dosage: 10 MG;BID;PO
     Route: 048
     Dates: start: 20100201

REACTIONS (2)
  - BLOOD GLUCOSE INCREASED [None]
  - INCORRECT ROUTE OF DRUG ADMINISTRATION [None]
